FAERS Safety Report 5099160-1 (Version None)
Quarter: 2006Q3

REPORT INFORMATION
  Report Type: 
  Country: None (occurrence: None)
  Receive Date: 20060728
  Receipt Date: 20051118
  Transmission Date: 20061208
  Serious: No
  Sender: FDA-Public Use
  Company Number: COT_0273_2005

PATIENT
  Age: 53 Year
  Sex: Female
  Weight: 111.5849 kg

DRUGS (14)
  1. VENTAVIS [Suspect]
     Indication: PULMONARY HYPERTENSION
     Dosage: 2.5 MCG ONCE IH
     Dates: start: 20050415, end: 20050415
  2. VENTAVIS [Suspect]
     Indication: PULMONARY HYPERTENSION
     Dosage: 5 MCG 6TO9X/DAY IH
     Dates: start: 20050415
  3. VENTAVIS [Suspect]
     Indication: PULMONARY HYPERTENSION
     Dosage: 5 MCG 6TO9X/DAY IH
     Dates: start: 20050415
  4. VENTAVIS [Suspect]
     Indication: PULMONARY HYPERTENSION
     Dosage: 5 MCG 5XD IH
  5. VENTAVIS [Suspect]
     Indication: PULMONARY HYPERTENSION
     Dosage: 5 MCG 6TO9X/DAY IH
  6. VENTAVIS [Suspect]
     Indication: PULMONARY HYPERTENSION
     Dosage: 5 MCG 6TO9X/DAY IH
  7. VENTAVIS [Suspect]
     Indication: PULMONARY HYPERTENSION
     Dosage: 5 MCG 4 TIMES A DAY IH
  8. ALDACTONE [Concomitant]
  9. DIGOXIN [Concomitant]
  10. FUROSEMIDE [Concomitant]
  11. SYNTHROID [Concomitant]
  12. LACTULOSE [Concomitant]
  13. TRUSOPT [Concomitant]
  14. ALPHAGAN [Concomitant]

REACTIONS (6)
  - ASTHENIA [None]
  - COUGH [None]
  - DIZZINESS [None]
  - HEADACHE [None]
  - NAUSEA [None]
  - PAIN IN JAW [None]
